FAERS Safety Report 15202982 (Version 1)
Quarter: 2018Q3

REPORT INFORMATION
  Report Type: Spontaneous
  Country: US (occurrence: US)
  Receive Date: 20180726
  Receipt Date: 20180726
  Transmission Date: 20181010
  Serious: Yes (Hospitalization)
  Sender: FDA-Public Use
  Company Number: US-FRESENIUS KABI-FK201808205

PATIENT
  Age: 21 Year
  Sex: Female

DRUGS (3)
  1. VANCOMYCIN (MANUFACTURER UNKNOWN) [Suspect]
     Active Substance: VANCOMYCIN
     Indication: EMPYEMA
     Route: 065
  2. CEFTRIAXONE SODIUM. [Suspect]
     Active Substance: CEFTRIAXONE SODIUM
     Indication: EMPYEMA
     Route: 065
  3. LINEZOLID (MANUFACTURER UNKNOWN) [Suspect]
     Active Substance: LINEZOLID
     Indication: PRODUCT USED FOR UNKNOWN INDICATION
     Route: 065

REACTIONS (15)
  - Eosinophil count increased [Recovered/Resolved]
  - Drug reaction with eosinophilia and systemic symptoms [Recovered/Resolved]
  - Pyrexia [Recovered/Resolved]
  - Lung infiltration [Recovered/Resolved]
  - Lymphadenopathy [Recovered/Resolved]
  - Acute respiratory failure [Recovered/Resolved]
  - Pulmonary eosinophilia [Recovered/Resolved]
  - Langerhans^ cell histiocytosis [Recovered/Resolved]
  - Thrombocytopenia [Recovered/Resolved]
  - Histiocytosis [Recovered/Resolved]
  - Plasma cell disorder [Recovered/Resolved]
  - Seizure [Recovered/Resolved]
  - Rash erythematous [Recovered/Resolved]
  - Pneumothorax [Recovered/Resolved]
  - Lymphocyte count [Recovered/Resolved]
